FAERS Safety Report 12747665 (Version 1)
Quarter: 2016Q3

REPORT INFORMATION
  Report Type: Spontaneous
  Country: FR (occurrence: FR)
  Receive Date: 20160915
  Receipt Date: 20160915
  Transmission Date: 20161109
  Serious: Yes (Hospitalization)
  Sender: FDA-Public Use
  Company Number: FR-AMGEN-FRASP2016122324

PATIENT
  Age: 86 Year
  Sex: Female

DRUGS (6)
  1. INSULINE [Concomitant]
     Active Substance: INSULIN NOS
  2. LOXEN [Concomitant]
     Active Substance: NICARDIPINE HYDROCHLORIDE
  3. COUMADINE [Concomitant]
     Active Substance: WARFARIN SODIUM
  4. FUROSEMIDE. [Concomitant]
     Active Substance: FUROSEMIDE
  5. MIMPARA [Suspect]
     Active Substance: CINACALCET HYDROCHLORIDE
     Indication: HYPERCALCAEMIA
     Dosage: 30 MG, UNK
     Route: 048
     Dates: start: 20160827, end: 20160828
  6. LEVOTHYROX [Concomitant]
     Active Substance: LEVOTHYROXINE

REACTIONS (1)
  - Malaise [Not Recovered/Not Resolved]

NARRATIVE: CASE EVENT DATE: 20160828
